FAERS Safety Report 25368373 (Version 1)
Quarter: 2025Q2

REPORT INFORMATION
  Report Type: Spontaneous
  Country: US (occurrence: US)
  Receive Date: 20250528
  Receipt Date: 20250528
  Transmission Date: 20250716
  Serious: Yes (Other)
  Sender: UROGEN PHARMA
  Company Number: US-UROGEN PHARMA LTD.-2025-UGN-000090

PATIENT

DRUGS (6)
  1. JELMYTO [Suspect]
     Active Substance: MITOMYCIN
     Indication: Transitional cell cancer of the renal pelvis and ureter
  2. JELMYTO [Suspect]
     Active Substance: MITOMYCIN
  3. JELMYTO [Suspect]
     Active Substance: MITOMYCIN
  4. JELMYTO [Suspect]
     Active Substance: MITOMYCIN
  5. JELMYTO [Suspect]
     Active Substance: MITOMYCIN
  6. JELMYTO [Suspect]
     Active Substance: MITOMYCIN

REACTIONS (2)
  - Neoplasm malignant [Unknown]
  - Therapy partial responder [Unknown]
